FAERS Safety Report 7243644-4 (Version None)
Quarter: 2011Q1

REPORT INFORMATION
  Report Type: 
  Country: None (occurrence: None)
  Receive Date: 20110125
  Receipt Date: 20110117
  Transmission Date: 20110831
  Serious: Yes (Life-Threatening, Other)
  Sender: FDA-Public Use
  Company Number: PHHY2011JP01721

PATIENT
  Age: 66 Year
  Sex: Male

DRUGS (9)
  1. FAMVIR [Suspect]
     Dosage: 1500 MG, QD
     Route: 048
     Dates: start: 20101016, end: 20101025
  2. FAMVIR [Suspect]
     Indication: HERPES ZOSTER
     Dosage: 1500 MG, QD
     Route: 048
     Dates: start: 20101004, end: 20101004
  3. VIDARABINE [Concomitant]
     Dosage: UNK
     Dates: start: 20100916, end: 20100926
  4. FAMVIR [Suspect]
     Dosage: 2250 MG, QD
     Route: 048
     Dates: start: 20101005, end: 20101014
  5. FAMVIR [Suspect]
     Dosage: 2000 MG, QD
     Route: 048
     Dates: start: 20101015, end: 20101015
  6. ACYCLOVIR [Concomitant]
     Dosage: UNK
     Dates: start: 20100902, end: 20100904
  7. ACYCLOVIR [Concomitant]
     Dosage: UNK
     Dates: start: 20100905, end: 20100908
  8. VIDARABINE [Concomitant]
     Dosage: UNK
     Dates: start: 20100927, end: 20101003
  9. FAMVIR [Suspect]
     Dosage: 500 MG, QD
     Route: 048
     Dates: start: 20101026, end: 20101031

REACTIONS (8)
  - LOGORRHOEA [None]
  - HALLUCINATION [None]
  - SKIN ULCER [None]
  - ASPARTATE AMINOTRANSFERASE INCREASED [None]
  - ALANINE AMINOTRANSFERASE INCREASED [None]
  - HEPATIC FUNCTION ABNORMAL [None]
  - BLISTER [None]
  - BLOOD ALKALINE PHOSPHATASE INCREASED [None]
